FAERS Safety Report 10809012 (Version 2)
Quarter: 2016Q1

REPORT INFORMATION
  Report Type: Spontaneous
  Country: US (occurrence: US)
  Receive Date: 20150212
  Receipt Date: 20160309
  Transmission Date: 20160525
  Serious: Yes (Death)
  Sender: FDA-Public Use
  Company Number: US-H14001-15-00236

PATIENT

DRUGS (2)
  1. FENTANYL CITRATE INJECTION USP (FENTANYL CITRATE) [Suspect]
     Active Substance: FENTANYL CITRATE
     Indication: ANAESTHESIA
     Route: 042
  2. FENTANYL CITRATE INJECTION USP (FENTANYL CITRATE) [Suspect]
     Active Substance: FENTANYL CITRATE
     Route: 042

REACTIONS (2)
  - Syncope [Fatal]
  - Blood pressure decreased [Fatal]

NARRATIVE: CASE EVENT DATE: 2015
